FAERS Safety Report 4802703-3 (Version None)
Quarter: 2005Q4

REPORT INFORMATION
  Report Type: 
  Country: None (occurrence: None)
  Receive Date: 20051014
  Receipt Date: 20050809
  Transmission Date: 20060501
  Serious: Yes (Other)
  Sender: FDA-Public Use
  Company Number: 2005112873

PATIENT
  Age: 66 Year
  Sex: Female
  Weight: 66.2252 kg

DRUGS (6)
  1. NEURONTIN [Suspect]
     Indication: FIBROMYALGIA
     Dosage: 600MG (300 MG, 2 IN 1 D) ORAL
     Route: 048
  2. NEURONTIN [Suspect]
     Indication: SYSTEMIC LUPUS ERYTHEMATOSUS
     Dosage: 600MG (300 MG, 2 IN 1 D) ORAL
     Route: 048
  3. THYROID TAB [Concomitant]
  4. VERAPAMIL [Concomitant]
  5. ALL OTHER THERAPEUTIC PRODUCTS (ALL OTHER THERAPEUTIC PRODUCTS) [Concomitant]
  6. ESTROGENS SOL/INJ [Concomitant]

REACTIONS (11)
  - ABDOMINAL PAIN UPPER [None]
  - APTYALISM [None]
  - CONVULSION [None]
  - DRUG INEFFECTIVE [None]
  - DRY EYE [None]
  - DRY MOUTH [None]
  - FATIGUE [None]
  - HYPERTENSION [None]
  - INSOMNIA [None]
  - NASAL DRYNESS [None]
  - VISION BLURRED [None]
